FAERS Safety Report 16375375 (Version 2)
Quarter: 2019Q2

REPORT INFORMATION
  Report Type: Spontaneous
  Country: TR (occurrence: TR)
  Receive Date: 20190531
  Receipt Date: 20190604
  Transmission Date: 20190711
  Serious: Yes (Hospitalization, Other)
  Sender: FDA-Public Use
  Company Number: TR-ASTELLAS-2019US022879

PATIENT
  Age: 38 Year
  Sex: Female

DRUGS (6)
  1. CICLOSPORIN [Suspect]
     Active Substance: CYCLOSPORINE
     Dosage: UNK UNK, UNKNOWN FREQ.
     Route: 065
  2. CICLOSPORIN [Suspect]
     Active Substance: CYCLOSPORINE
     Indication: PROPHYLAXIS AGAINST TRANSPLANT REJECTION
     Dosage: UNK UNK, UNKNOWN FREQ.
     Route: 065
     Dates: start: 199811, end: 200212
  3. AZATHIOPRINE. [Suspect]
     Active Substance: AZATHIOPRINE
     Indication: PROPHYLAXIS AGAINST TRANSPLANT REJECTION
     Dosage: UNK UNK, UNKNOWN FREQ.
     Route: 065
     Dates: start: 199811
  4. DILTIAZEM                          /00489702/ [Concomitant]
     Active Substance: DILTIAZEM
     Indication: PRODUCT USED FOR UNKNOWN INDICATION
     Dosage: UNK UNK, UNKNOWN FREQ.
     Route: 065
  5. TACROLIMUS. [Suspect]
     Active Substance: TACROLIMUS
     Indication: PROPHYLAXIS AGAINST TRANSPLANT REJECTION
     Dosage: UNK UNK, UNKNOWN FREQ.
     Route: 065
     Dates: start: 200112
  6. PREDNISOLONE. [Suspect]
     Active Substance: PREDNISOLONE
     Indication: PROPHYLAXIS AGAINST TRANSPLANT REJECTION
     Dosage: UNK UNK, UNKNOWN FREQ.
     Route: 065
     Dates: start: 199811

REACTIONS (22)
  - Cystostomy [Unknown]
  - Glycosuria [Recovered/Resolved]
  - Anion gap increased [Recovered/Resolved]
  - Lymphocele [Unknown]
  - Mental status changes [Recovered/Resolved]
  - Blood sodium decreased [Recovered/Resolved]
  - Diabetic ketoacidosis [Recovered/Resolved]
  - Fructosamine increased [Recovered/Resolved]
  - Atelectasis [Unknown]
  - Ketonuria [Recovered/Resolved]
  - Polydipsia [Recovered/Resolved]
  - Dehydration [Recovered/Resolved]
  - Fatigue [Recovered/Resolved]
  - Glycosylated haemoglobin increased [Recovered/Resolved]
  - Polyuria [Recovered/Resolved]
  - Blood glucose increased [Recovered/Resolved]
  - Microalbuminuria [Not Recovered/Not Resolved]
  - Blood creatinine increased [Recovered/Resolved]
  - Dyslipidaemia [Not Recovered/Not Resolved]
  - Hyperglycaemia [Recovered/Resolved]
  - Lung infection [Unknown]
  - White blood cell count increased [Unknown]
